FAERS Safety Report 6723568-9 (Version None)
Quarter: 2010Q2

REPORT INFORMATION
  Report Type: 
  Country: None (occurrence: None)
  Receive Date: 20100513
  Receipt Date: 20100326
  Transmission Date: 20101027
  Serious: Yes (Hospitalization)
  Sender: FDA-Public Use
  Company Number: SI-ASTRAZENECA-2010SE20301

PATIENT
  Age: 40 Year
  Sex: Female

DRUGS (1)
  1. XYLOCAINE [Suspect]
     Indication: INFILTRATION ANAESTHESIA
     Dosage: 5 ML
     Route: 058
     Dates: start: 20100218, end: 20100218

REACTIONS (3)
  - BLOOD PRESSURE DECREASED [None]
  - DIZZINESS [None]
  - PARAESTHESIA [None]
